FAERS Safety Report 22254851 (Version 1)
Quarter: 2023Q2

REPORT INFORMATION
  Report Type: Spontaneous
  Country: CA (occurrence: CA)
  Receive Date: 20230426
  Receipt Date: 20230426
  Transmission Date: 20230721
  Serious: Yes (Other)
  Sender: FDA-Public Use
  Company Number: CA-UCBSA-2023020960

PATIENT
  Sex: Male

DRUGS (6)
  1. LEVETIRACETAM [Suspect]
     Active Substance: LEVETIRACETAM
     Indication: Epileptic encephalopathy
     Dosage: UNK
  2. LEVETIRACETAM [Suspect]
     Active Substance: LEVETIRACETAM
     Indication: Acquired epileptic aphasia
  3. CLOBAZAM [Suspect]
     Active Substance: CLOBAZAM
     Indication: Epileptic encephalopathy
     Dosage: UNK
  4. CLOBAZAM [Suspect]
     Active Substance: CLOBAZAM
     Indication: Acquired epileptic aphasia
  5. VALPROIC ACID [Suspect]
     Active Substance: VALPROIC ACID
     Indication: Acquired epileptic aphasia
     Dosage: UNK
  6. VALPROIC ACID [Suspect]
     Active Substance: VALPROIC ACID
     Indication: Epileptic encephalopathy

REACTIONS (1)
  - Drug ineffective for unapproved indication [Unknown]
